FAERS Safety Report 4982705-7 (Version None)
Quarter: 2006Q2

REPORT INFORMATION
  Report Type: 
  Country: None (occurrence: None)
  Receive Date: 20060425
  Receipt Date: 20050928
  Transmission Date: 20061013
  Serious: Yes (Hospitalization, Disabling, Other)
  Sender: FDA-Public Use
  Company Number: US-MERCK-0509USA04959

PATIENT
  Age: 57 Year
  Sex: Male
  Weight: 75 kg

DRUGS (3)
  1. VIOXX [Suspect]
     Indication: ARTHRITIS
     Route: 048
     Dates: start: 20001101, end: 20040701
  2. VIOXX [Suspect]
     Indication: PAIN IN EXTREMITY
     Route: 048
     Dates: start: 20001101, end: 20040701
  3. TYLENOL (CAPLET) [Concomitant]
     Route: 065

REACTIONS (18)
  - ABDOMINAL PAIN [None]
  - ANGINA PECTORIS [None]
  - ARTERIAL RESTENOSIS [None]
  - ARTHROPATHY [None]
  - CARDIAC DISORDER [None]
  - CHEST PAIN [None]
  - CORONARY ARTERY DISEASE [None]
  - DYSPNOEA [None]
  - GROIN PAIN [None]
  - HYPERHIDROSIS [None]
  - HYPERTENSION [None]
  - INGUINAL HERNIA, OBSTRUCTIVE [None]
  - INTERMITTENT CLAUDICATION [None]
  - PAIN IN EXTREMITY [None]
  - PERIPHERAL VASCULAR DISORDER [None]
  - SKIN LACERATION [None]
  - VASCULAR INSUFFICIENCY [None]
  - VASCULAR PSEUDOANEURYSM [None]
